FAERS Safety Report 12199533 (Version 1)
Quarter: 2016Q1

REPORT INFORMATION
  Report Type: Spontaneous
  Country: JP (occurrence: JP)
  Receive Date: 20160322
  Receipt Date: 20160322
  Transmission Date: 20160526
  Serious: Yes (Other)
  Sender: FDA-Public Use
  Company Number: JP-TEVA-644566ISR

PATIENT
  Age: 59 Year
  Sex: Female
  Weight: 50 kg

DRUGS (28)
  1. E-FEN BUCCAL [Suspect]
     Active Substance: FENTANYL CITRATE
     Dosage: 100 MICROGRAM - 800 MICROGRAM
     Route: 002
     Dates: start: 20141031, end: 20141106
  2. LOXONIN [Concomitant]
     Active Substance: LOXOPROFEN SODIUM
     Indication: CANCER PAIN
     Dosage: 1800 MILLIGRAM DAILY;
     Route: 048
     Dates: start: 20141016
  3. ONEDURO [Concomitant]
     Active Substance: FENTANYL
     Dosage: 2.54 MILLIGRAM DAILY;
     Route: 062
     Dates: start: 20141101, end: 20141203
  4. ONEDURO [Concomitant]
     Active Substance: FENTANYL
     Dosage: .84 MILLIGRAM DAILY;
     Route: 062
     Dates: start: 20141014, end: 20141019
  5. CARBOPLATIN. [Concomitant]
     Active Substance: CARBOPLATIN
     Indication: CHEMOTHERAPY
     Route: 065
     Dates: start: 20141126, end: 20141210
  6. E-FEN BUCCAL [Suspect]
     Active Substance: FENTANYL CITRATE
     Indication: BREAKTHROUGH PAIN
     Dosage: 200 MICROGRAM - 1000 MICROGRAM
     Route: 002
     Dates: start: 20141120, end: 20141210
  7. E-FEN BUCCAL [Suspect]
     Active Substance: FENTANYL CITRATE
     Route: 002
     Dates: start: 20141117, end: 20141129
  8. E-FEN BUCCAL [Suspect]
     Active Substance: FENTANYL CITRATE
     Dosage: 50 MICROGRAM - 300 MICROGRAM
     Route: 002
     Dates: start: 20141011, end: 20141022
  9. ONEDURO [Concomitant]
     Active Substance: FENTANYL
     Dosage: .42 MILLIGRAM DAILY;
     Route: 062
     Dates: start: 20141010, end: 20141013
  10. CALONAL [Concomitant]
     Active Substance: ACETAMINOPHEN
     Indication: CANCER PAIN
     Dosage: 900 MILLIGRAM DAILY;
     Route: 048
     Dates: start: 20141009
  11. CALONAL [Concomitant]
     Active Substance: ACETAMINOPHEN
     Dosage: 1800 MILLIGRAM DAILY;
     Route: 048
     Dates: start: 20141007
  12. ONEDURO [Concomitant]
     Active Substance: FENTANYL
     Indication: CANCER PAIN
     Dosage: 1.7 MILLIGRAM DAILY;
     Route: 062
     Dates: start: 20141204
  13. TS-1 [Concomitant]
     Active Substance: GIMERACIL\OTERACIL\TEGAFUR
     Route: 065
     Dates: start: 20141104, end: 20141117
  14. PURSENNID [Concomitant]
     Active Substance: SENNOSIDES A AND B
     Indication: CONSTIPATION
     Dosage: 24 MILLIGRAM DAILY;
     Route: 048
     Dates: start: 20141006
  15. E-FEN BUCCAL [Suspect]
     Active Substance: FENTANYL CITRATE
     Dosage: 200 MICROGRAM - 1000 MICROGRAM
     Route: 002
     Dates: start: 20141107, end: 20141116
  16. NOVAMIN [Concomitant]
     Active Substance: PROCHLORPERAZINE MALEATE
     Indication: PROPHYLAXIS
     Dosage: 15 MILLIGRAM DAILY;
     Route: 048
     Dates: start: 20141008
  17. MAGMITT [Concomitant]
     Active Substance: MAGNESIUM OXIDE
     Indication: CONSTIPATION
     Dosage: 990 MILLIGRAM DAILY;
     Route: 048
     Dates: start: 20141009
  18. E-FEN BUCCAL [Suspect]
     Active Substance: FENTANYL CITRATE
     Route: 002
     Dates: start: 20141023, end: 20141030
  19. LOXONIN [Concomitant]
     Active Substance: LOXOPROFEN SODIUM
     Route: 048
     Dates: end: 20141015
  20. ONEDURO [Concomitant]
     Active Substance: FENTANYL
     Dosage: 1.26 MILLIGRAM DAILY;
     Route: 062
     Dates: start: 20141020, end: 20141021
  21. TS-1 [Concomitant]
     Active Substance: GIMERACIL\OTERACIL\TEGAFUR
     Indication: CHEMOTHERAPY
     Route: 065
     Dates: start: 20141126, end: 20141210
  22. DEXART [Concomitant]
     Active Substance: DEXAMETHASONE SODIUM PHOSPHATE
     Indication: NON-SMALL CELL LUNG CANCER
     Dosage: 4 MILLIGRAM DAILY;
     Route: 042
     Dates: start: 20141003, end: 20141021
  23. GLYCEOL [Concomitant]
     Active Substance: GLYCERIN
     Indication: NON-SMALL CELL LUNG CANCER
     Dosage: 400 MILLIGRAM DAILY;
     Route: 042
     Dates: start: 20141003, end: 20141021
  24. TAKEPRON [Concomitant]
     Active Substance: LANSOPRAZOLE
     Indication: FUNCTIONAL GASTROINTESTINAL DISORDER
     Dosage: 15 MILLIGRAM DAILY;
     Route: 048
  25. RIZE [Concomitant]
     Active Substance: CLOTIAZEPAM
     Indication: CANCER PAIN
     Route: 048
     Dates: start: 20141203
  26. ONEDURO [Concomitant]
     Active Substance: FENTANYL
     Dosage: 1.7 MILLIGRAM DAILY;
     Route: 062
     Dates: start: 20141022, end: 20141031
  27. CARBOPLATIN. [Concomitant]
     Active Substance: CARBOPLATIN
     Route: 065
     Dates: start: 20141104, end: 20141117
  28. KADIAN [Concomitant]
     Active Substance: MORPHINE SULFATE
     Indication: CANCER PAIN
     Dosage: 20 MILLIGRAM DAILY;
     Route: 048
     Dates: start: 20141106

REACTIONS (12)
  - Dependence [Not Recovered/Not Resolved]
  - C-reactive protein increased [Recovering/Resolving]
  - Hyperkalaemia [Recovered/Resolved]
  - Decreased appetite [Not Recovered/Not Resolved]
  - Hypercalcaemia [Recovered/Resolved]
  - Vomiting [Recovered/Resolved]
  - Pyrexia [Recovered/Resolved]
  - Anxiety [Not Recovered/Not Resolved]
  - Nausea [Recovered/Resolved]
  - Constipation [Recovering/Resolving]
  - Insomnia [Not Recovered/Not Resolved]
  - Malaise [Not Recovered/Not Resolved]

NARRATIVE: CASE EVENT DATE: 20141020
